FAERS Safety Report 25641295 (Version 2)
Quarter: 2025Q3

REPORT INFORMATION
  Report Type: Report from Study
  Country: CA (occurrence: CA)
  Receive Date: 20250804
  Receipt Date: 20250916
  Transmission Date: 20251021
  Serious: Yes (Other)
  Sender: ALEXION PHARMACEUTICALS
  Company Number: CA-AstraZeneca-CH-00922513A

PATIENT
  Sex: Female

DRUGS (6)
  1. TEZEPELUMAB [Suspect]
     Active Substance: TEZEPELUMAB
     Indication: Asthma
  2. TEZEPELUMAB [Suspect]
     Active Substance: TEZEPELUMAB
  3. NUCALA [Concomitant]
     Active Substance: MEPOLIZUMAB
     Route: 065
  4. VENTOLIN [Concomitant]
     Active Substance: ALBUTEROL SULFATE
  5. SPIRIVA [Concomitant]
     Active Substance: TIOTROPIUM BROMIDE MONOHYDRATE
  6. ZENHALE [Concomitant]
     Active Substance: FORMOTEROL FUMARATE\MOMETASONE FUROATE

REACTIONS (9)
  - Drug ineffective [Unknown]
  - Fatigue [Unknown]
  - Dyspnoea [Unknown]
  - Hypertension [Unknown]
  - Heart rate increased [Unknown]
  - Respiratory rate increased [Unknown]
  - Blood pressure measurement [Unknown]
  - Heart rate [Unknown]
  - Respiratory rate [Unknown]
